FAERS Safety Report 13761564 (Version 1)
Quarter: 2017Q3

REPORT INFORMATION
  Report Type: Spontaneous
  Country: DE (occurrence: DE)
  Receive Date: 20170717
  Receipt Date: 20170717
  Transmission Date: 20171127
  Serious: Yes (Other)
  Sender: FDA-Public Use
  Company Number: DE-AMGEN-DEUSP2017107054

PATIENT
  Age: 16 Year
  Sex: Female

DRUGS (1)
  1. ENBREL [Suspect]
     Active Substance: ETANERCEPT
     Indication: ANKYLOSING SPONDYLITIS
     Dosage: 50 MG, 1X/WEEKLY
     Route: 065
     Dates: start: 20170314

REACTIONS (1)
  - Nasal ulcer [Not Recovered/Not Resolved]

NARRATIVE: CASE EVENT DATE: 2017
